FAERS Safety Report 14970912 (Version 1)
Quarter: 2018Q2

REPORT INFORMATION
  Report Type: Spontaneous
  Country: SE (occurrence: SE)
  Receive Date: 20180604
  Receipt Date: 20180604
  Transmission Date: 20180711
  Serious: Yes (Other)
  Sender: FDA-Public Use
  Company Number: SE-BAYER-2018-100608

PATIENT
  Age: 22 Year
  Sex: Female
  Weight: 62 kg

DRUGS (2)
  1. YAZ [Suspect]
     Active Substance: DROSPIRENONE\ETHINYL ESTRADIOL
     Dosage: UNK
     Route: 048
     Dates: start: 20180220, end: 20180227
  2. PARACETAMOL [Concomitant]
     Active Substance: ACETAMINOPHEN

REACTIONS (10)
  - Dizziness [Recovering/Resolving]
  - Loss of libido [Recovering/Resolving]
  - Headache [Recovering/Resolving]
  - Migraine with aura [Recovering/Resolving]
  - Mood altered [Recovering/Resolving]
  - Vomiting [Recovering/Resolving]
  - Visual field defect [Recovering/Resolving]
  - Nausea [Recovering/Resolving]
  - Uterine cervical pain [Recovering/Resolving]
  - Balance disorder [Recovering/Resolving]

NARRATIVE: CASE EVENT DATE: 20180221
